FAERS Safety Report 20490929 (Version 2)
Quarter: 2022Q4

REPORT INFORMATION
  Report Type: Report from Study
  Country: DE (occurrence: DE)
  Receive Date: 20220218
  Receipt Date: 20221227
  Transmission Date: 20230113
  Serious: Yes (Hospitalization, Other)
  Sender: FDA-Public Use
  Company Number: DE-AMGEN-DEUSL2022023365

PATIENT
  Age: 64 Year
  Sex: Male

DRUGS (4)
  1. ADALIMUMAB [Suspect]
     Active Substance: ADALIMUMAB
     Indication: Giant cell arteritis
     Dosage: UNK UNK, Q2WK
     Route: 065
     Dates: start: 202112
  2. ADALIMUMAB [Suspect]
     Active Substance: ADALIMUMAB
     Indication: Polymyalgia rheumatica
  3. ADALIMUMAB [Suspect]
     Active Substance: ADALIMUMAB
     Indication: Off label use
  4. ADALIMUMAB [Suspect]
     Active Substance: ADALIMUMAB
     Indication: Arthritis

REACTIONS (4)
  - Deafness [Unknown]
  - Intestinal haemorrhage [Unknown]
  - Blood pressure fluctuation [Unknown]
  - Off label use [Unknown]

NARRATIVE: CASE EVENT DATE: 20211201
